FAERS Safety Report 5868515-7 (Version None)
Quarter: 2008Q3

REPORT INFORMATION
  Report Type: 
  Country: None (occurrence: None)
  Receive Date: 20080902
  Receipt Date: 20080902
  Transmission Date: 20090109
  Serious: Yes (Other)
  Sender: FDA-Public Use
  Company Number: None

PATIENT
  Age: 20 Year
  Sex: Female
  Weight: 58.9676 kg

DRUGS (1)
  1. MINOCYCLINE 75 MG TEVA [Suspect]
     Indication: ACNE
     Dosage: 75MG  TWICE DAILY PO
     Route: 048
     Dates: start: 20080729, end: 20080829

REACTIONS (2)
  - INTRACRANIAL PRESSURE INCREASED [None]
  - TINNITUS [None]
